FAERS Safety Report 13697124 (Version 1)
Quarter: 2017Q2

REPORT INFORMATION
  Report Type: Spontaneous
  Country: US (occurrence: US)
  Receive Date: 20170627
  Receipt Date: 20170627
  Transmission Date: 20170830
  Serious: Yes (Hospitalization, Other)
  Sender: FDA-Public Use
  Company Number: None

PATIENT
  Age: 60 Year
  Sex: Female
  Weight: 58.5 kg

DRUGS (2)
  1. KLONOPIN [Suspect]
     Active Substance: CLONAZEPAM
     Indication: BIPOLAR DISORDER
     Route: 048
     Dates: start: 20010103, end: 20130613
  2. MULTIPLE VITAMIN [Concomitant]
     Active Substance: VITAMINS

REACTIONS (24)
  - Obsessive-compulsive symptom [None]
  - Photophobia [None]
  - Anxiety [None]
  - Panic attack [None]
  - Seizure [None]
  - Derealisation [None]
  - Fear [None]
  - Tremor [None]
  - Amnesia [None]
  - Migraine [None]
  - Nightmare [None]
  - Hyperhidrosis [None]
  - Head discomfort [None]
  - Psychotic disorder [None]
  - Confusional state [None]
  - Urinary tract infection [None]
  - Homicidal ideation [None]
  - Withdrawal syndrome [None]
  - Hyperacusis [None]
  - Agoraphobia [None]
  - Suicidal ideation [None]
  - Hallucination [None]
  - Insomnia [None]
  - Intentional self-injury [None]

NARRATIVE: CASE EVENT DATE: 20130613
